FAERS Safety Report 4555745-X (Version None)
Quarter: 2005Q1

REPORT INFORMATION
  Report Type: 
  Country: None (occurrence: None)
  Receive Date: 20050112
  Receipt Date: 20031229
  Transmission Date: 20050727
  Serious: Yes (Other)
  Sender: FDA-Public Use
  Company Number: 204040

PATIENT

DRUGS (1)
  1. ACTIVASE [Suspect]
     Indication: ARTERIAL OCCLUSIVE DISEASE
     Dosage: INTRAVENOUS
     Route: 042

REACTIONS (1)
  - HAEMORRHAGE [None]
